FAERS Safety Report 17794206 (Version 1)
Quarter: 2020Q2

REPORT INFORMATION
  Report Type: Spontaneous
  Country: FR (occurrence: FR)
  Receive Date: 20200515
  Receipt Date: 20200515
  Transmission Date: 20200714
  Serious: Yes (Other)
  Sender: FDA-Public Use
  Company Number: FR-MYLANLABS-2020M1047537

PATIENT
  Age: 19 Year
  Sex: Male

DRUGS (3)
  1. PREDNISONE. [Suspect]
     Active Substance: PREDNISONE
     Dosage: 1 MG/KG/DAY
     Route: 065
  2. PREDNISONE. [Suspect]
     Active Substance: PREDNISONE
     Indication: CASTLEMAN^S DISEASE
     Dosage: 1 GRAM FOR 2 DAYS
     Route: 065
  3. TOCILIZUMAB. [Suspect]
     Active Substance: TOCILIZUMAB
     Indication: CASTLEMAN^S DISEASE
     Dosage: 8 MG/KG/15 DAYS
     Route: 065

REACTIONS (4)
  - Therapeutic product effect incomplete [Unknown]
  - Intentional product use issue [Unknown]
  - Hypotension [Unknown]
  - Off label use [Unknown]
